FAERS Safety Report 8103765-0 (Version None)
Quarter: 2012Q1

REPORT INFORMATION
  Report Type: 
  Country: None (occurrence: None)
  Receive Date: 20120127
  Receipt Date: 20120116
  Transmission Date: 20120608
  Serious: Yes (Hospitalization, Other)
  Sender: FDA-Public Use
  Company Number: 2012AP000021

PATIENT
  Age: 54 Year
  Sex: Female
  Weight: 65 kg

DRUGS (4)
  1. VALPROATE SODIUM [Suspect]
     Indication: CONVULSION
     Dosage: 1500 MG; IV, 750 MG; IVBOL, 1000 MG; IVBOL
     Route: 042
  2. DORIPENEM [Suspect]
     Indication: PNEUMONIA ASPIRATION
     Dosage: 500 MG;Q8H;IV
     Route: 042
  3. VALPROIC ACID SYRUP [Suspect]
     Indication: CONVULSION
     Dosage: 250 MG;Q8H;
  4. DIVALPROEX SODIUM [Suspect]
     Indication: CONVULSION
     Dosage: 750 MG;HS;PO, 750 MG;QD;

REACTIONS (5)
  - CHRONIC OBSTRUCTIVE PULMONARY DISEASE [None]
  - PNEUMONIA ASPIRATION [None]
  - DRUG INTERACTION [None]
  - ANTICONVULSANT DRUG LEVEL DECREASED [None]
  - CONDITION AGGRAVATED [None]
